FAERS Safety Report 8360867-1 (Version None)
Quarter: 2012Q2

REPORT INFORMATION
  Report Type: 
  Country: None (occurrence: None)
  Receive Date: 20120515
  Receipt Date: 20120514
  Transmission Date: 20120825
  Serious: Yes (Death)
  Sender: FDA-Public Use
  Company Number: US-ROCHE-1068930

PATIENT
  Age: 75 Year
  Sex: Male

DRUGS (4)
  1. RITUXAN [Suspect]
     Indication: PRODUCT USED FOR UNKNOWN INDICATION
     Dates: start: 20120313
  2. RITUXAN [Suspect]
     Dates: start: 20120406
  3. RITUXAN [Suspect]
     Dates: start: 20120413
  4. RITUXAN [Suspect]
     Dates: start: 20120327

REACTIONS (1)
  - DEATH [None]
